FAERS Safety Report 17414438 (Version 1)
Quarter: 2020Q1

REPORT INFORMATION
  Report Type: Spontaneous
  Country: DE (occurrence: DE)
  Receive Date: 20200213
  Receipt Date: 20200213
  Transmission Date: 20200409
  Serious: Yes (Hospitalization, Other)
  Sender: FDA-Public Use
  Company Number: DE-MYLANLABS-2020M1015490

PATIENT
  Age: 81 Year
  Sex: Female

DRUGS (8)
  1. XARELTO [Concomitant]
     Active Substance: RIVAROXABAN
     Indication: ANTICOAGULANT THERAPY
     Dosage: UNK
     Dates: start: 201605
  2. OPSUMIT [Suspect]
     Active Substance: MACITENTAN
     Indication: PULMONARY ARTERIAL HYPERTENSION
     Dosage: 10 MG, QD
     Route: 048
     Dates: start: 201512
  3. RIOCIGUAT. [Concomitant]
     Active Substance: RIOCIGUAT
     Dosage: 1 G, TID
  4. TADALAFIL. [Concomitant]
     Active Substance: TADALAFIL
     Dosage: 40 MG, QD
     Dates: start: 201505
  5. BOSENTAN. [Suspect]
     Active Substance: BOSENTAN
     Indication: PULMONARY ARTERIAL HYPERTENSION
     Dosage: UNK
     Route: 048
  6. LISINOPRIL. [Concomitant]
     Active Substance: LISINOPRIL
     Dosage: 5 MG, QD
  7. BISOPROLOL [Concomitant]
     Active Substance: BISOPROLOL
     Dosage: 5 MG, QD
  8. TADALAFIL. [Concomitant]
     Active Substance: TADALAFIL
     Dosage: 40 MG, QD
     Dates: start: 201405

REACTIONS (13)
  - Concomitant disease aggravated [Unknown]
  - Coronary artery stenosis [Unknown]
  - Splenomegaly [Unknown]
  - Platelet disorder [Unknown]
  - Haematocrit increased [Unknown]
  - Cardiac failure [Unknown]
  - Brain natriuretic peptide abnormal [Unknown]
  - Myeloproliferative neoplasm [Unknown]
  - Polycythaemia [Unknown]
  - Blood lactate dehydrogenase [Unknown]
  - Circulatory collapse [Unknown]
  - Dyspnoea exertional [Unknown]
  - Biopsy bone marrow [Unknown]

NARRATIVE: CASE EVENT DATE: 201709
